FAERS Safety Report 9022069 (Version 1)
Quarter: 2013Q1

REPORT INFORMATION
  Report Type: Spontaneous
  Country: US (occurrence: US)
  Receive Date: 20130118
  Receipt Date: 20130118
  Transmission Date: 20140127
  Serious: Yes (Hospitalization)
  Sender: FDA-Public Use
  Company Number: US-GLAXOSMITHKLINE-A1008015A

PATIENT
  Sex: Male

DRUGS (1)
  1. AVANDIA [Suspect]
     Indication: DIABETES MELLITUS
     Dates: start: 2000, end: 2002

REACTIONS (3)
  - Cardiac operation [Unknown]
  - Cerebrovascular accident [Not Recovered/Not Resolved]
  - Vascular occlusion [Not Recovered/Not Resolved]
